FAERS Safety Report 20259693 (Version 2)
Quarter: 2022Q1

REPORT INFORMATION
  Report Type: Spontaneous
  Country: JP (occurrence: JP)
  Receive Date: 20211230
  Receipt Date: 20220204
  Transmission Date: 20220423
  Serious: Yes (Death, Other)
  Sender: FDA-Public Use
  Company Number: JP-JAZZ-2021-JP-022895

PATIENT
  Age: 71 Year
  Sex: Female
  Weight: 56.5 kg

DRUGS (7)
  1. DEFITELIO [Suspect]
     Active Substance: DEFIBROTIDE SODIUM
     Indication: Venoocclusive liver disease
     Dosage: 25 MILLIGRAM/KILOGRAM, QD
     Route: 042
     Dates: start: 20200104, end: 20200114
  2. DEFITELIO [Suspect]
     Active Substance: DEFIBROTIDE SODIUM
     Dosage: 12.5 MILLIGRAM/KILOGRAM, QD
     Route: 042
     Dates: start: 20200115, end: 20200124
  3. DEFITELIO [Suspect]
     Active Substance: DEFIBROTIDE SODIUM
     Dosage: UNK
     Dates: start: 202002, end: 202003
  4. DEXAMETHASONE [Concomitant]
     Active Substance: DEXAMETHASONE
     Indication: Product used for unknown indication
     Dosage: 4 MILLIGRAM
     Dates: start: 202001, end: 202001
  5. METHYLPREDNISOLONE [Concomitant]
     Active Substance: METHYLPREDNISOLONE
     Indication: Product used for unknown indication
     Dosage: 0.5 MILLIGRAM
     Dates: start: 201911, end: 201912
  6. METHYLPREDNISOLONE [Concomitant]
     Active Substance: METHYLPREDNISOLONE
     Dosage: 0.7 MILLIGRAM
     Dates: start: 202001, end: 202002
  7. METHYLPREDNISOLONE [Concomitant]
     Active Substance: METHYLPREDNISOLONE
     Dosage: 1000 MILLIGRAM
     Dates: start: 202002, end: 202004

REACTIONS (9)
  - Death [Fatal]
  - Presyncope [Unknown]
  - Seizure [Unknown]
  - Respiratory failure [Unknown]
  - Melaena [Unknown]
  - Stenotrophomonas sepsis [Unknown]
  - Diarrhoea [Unknown]
  - Hypotension [Recovered/Resolved]
  - Off label use [Unknown]

NARRATIVE: CASE EVENT DATE: 20200101
